FAERS Safety Report 7575463-3 (Version None)
Quarter: 2011Q2

REPORT INFORMATION
  Report Type: 
  Country: None (occurrence: None)
  Receive Date: 20110627
  Receipt Date: 20110613
  Transmission Date: 20111010
  Serious: Yes (Death, Other)
  Sender: FDA-Public Use
  Company Number: CA-NAPPMUNDI-CAN-2011-0002059

PATIENT
  Age: 42 Year
  Sex: Female

DRUGS (3)
  1. CLONAZEPAM [Suspect]
     Indication: PRODUCT USED FOR UNKNOWN INDICATION
     Route: 065
     Dates: start: 20070101
  2. OXYCODONE HCL [Suspect]
     Indication: FIBROMYALGIA
     Dosage: UNK
     Route: 065
     Dates: start: 20070101
  3. MORPHINE SULFATE [Suspect]
     Indication: FIBROMYALGIA
     Dosage: UNK
     Route: 065
     Dates: start: 20070101

REACTIONS (6)
  - DRUG DEPENDENCE [None]
  - WEIGHT DECREASED [None]
  - COMPLETED SUICIDE [None]
  - DRUG WITHDRAWAL SYNDROME [None]
  - DYSSTASIA [None]
  - ASTHENIA [None]
